FAERS Safety Report 19649749 (Version 2)
Quarter: 2021Q3

REPORT INFORMATION
  Report Type: Report from Study
  Country: NO (occurrence: NO)
  Receive Date: 20210802
  Receipt Date: 20210826
  Transmission Date: 20211014
  Serious: Yes (Hospitalization, Other)
  Sender: FDA-Public Use
  Company Number: NO-TAKEDA-2021TUS047734

PATIENT
  Sex: Male

DRUGS (11)
  1. ENTOCORT [Concomitant]
     Active Substance: BUDESONIDE
     Dosage: 3 MILLIGRAM
  2. LOPERAMIDE [Concomitant]
     Active Substance: LOPERAMIDE
     Dosage: 2 MILLIGRAM
  3. REMERON [Concomitant]
     Active Substance: MIRTAZAPINE
     Dosage: UNK
  4. PREDNISONE. [Concomitant]
     Active Substance: PREDNISONE
     Dosage: 15 MILLIGRAM
  5. METOPROLOL. [Concomitant]
     Active Substance: METOPROLOL
     Dosage: 50 MILLIGRAM
  6. DIAZEPAM. [Concomitant]
     Active Substance: DIAZEPAM
     Dosage: 5 MILLIGRAM
  7. ADALIMUMAB [Concomitant]
     Active Substance: ADALIMUMAB
     Dosage: UNK
     Dates: start: 2017, end: 201902
  8. SELEXID N [Concomitant]
     Dosage: UNK
  9. VEDOLIZUMAB [Suspect]
     Active Substance: VEDOLIZUMAB
     Indication: CROHN^S DISEASE
     Dosage: UNK
     Route: 042
     Dates: start: 20170623
  10. SOMAC [Concomitant]
     Active Substance: PANTOPRAZOLE SODIUM
     Dosage: UNK
  11. CIPRALEX [Concomitant]
     Active Substance: ESCITALOPRAM OXALATE
     Dosage: 20 MILLIGRAM

REACTIONS (4)
  - Crohn^s disease [Recovered/Resolved]
  - Rectal haemorrhage [Recovered/Resolved]
  - Urinary tract infection [Recovered/Resolved]
  - Depression [Not Recovered/Not Resolved]

NARRATIVE: CASE EVENT DATE: 20210125
